FAERS Safety Report 12620753 (Version 2)
Quarter: 2016Q4

REPORT INFORMATION
  Report Type: Report from Study
  Country: JP (occurrence: JP)
  Receive Date: 20160804
  Receipt Date: 20161106
  Transmission Date: 20170207
  Serious: Yes (Hospitalization)
  Sender: FDA-Public Use
  Company Number: JP-ROCHE-1715899

PATIENT
  Age: 68 Year
  Sex: Male

DRUGS (11)
  1. ZOLPIDEM TARTRATE. [Suspect]
     Active Substance: ZOLPIDEM TARTRATE
     Indication: INSOMNIA
     Route: 048
     Dates: start: 20161020, end: 20161020
  2. BEVACIZUMAB [Suspect]
     Active Substance: BEVACIZUMAB
     Indication: COLON CANCER
     Dosage: DOSAGE IS UNCERTAIN. ?UNCONSCIOUSNESS: ONE COURSE INFECTION IN THE METASTATIC LUNG TUMOR (SUSPECTED)
     Route: 041
     Dates: start: 20160118, end: 2016
  3. 5-FU [Suspect]
     Active Substance: FLUOROURACIL
     Indication: COLON CANCER
     Dosage: DOSAGE IS UNCERTAIN.
     Route: 041
     Dates: start: 2016
  4. LEVOFOLINATE [Suspect]
     Active Substance: LEVOLEUCOVORIN CALCIUM
     Indication: COLON CANCER
     Dosage: DOSAGE IS UNCERTAIN.
     Route: 041
     Dates: start: 2016
  5. 5-FU [Suspect]
     Active Substance: FLUOROURACIL
     Indication: COLON CANCER
     Dosage: DOSAGE IS UNCERTAIN.
     Route: 040
     Dates: start: 2016
  6. LEVOFOLINATE [Suspect]
     Active Substance: LEVOLEUCOVORIN CALCIUM
     Indication: COLON CANCER
     Dosage: DOSAGE IS UNCERTAIN. ?UNCONSCIOUSNESS: ONE COURSE?INFECTION IN THE METASTATIC LUNG TUMOUR (SUSPECT
     Route: 041
     Dates: start: 20160118, end: 2016
  7. ELPLAT [Suspect]
     Active Substance: OXALIPLATIN
     Indication: COLON CANCER
     Dosage: DOSAGE IS UNCERTAIN. ?UNCONSCIOUSNESS: ONE COURSE?INFECTION IN THE METASTATIC LUNG TUMOUR (SUSPECT
     Route: 041
     Dates: start: 20160118, end: 2016
  8. 5-FU [Suspect]
     Active Substance: FLUOROURACIL
     Indication: COLON CANCER
     Dosage: DOSAGE IS UNCERTAIN. ?UNCONSCIOUSNESS: ONE COURSE?INFECTION IN THE METASTATIC LUNG TUMOUR (SUSPECT
     Route: 040
     Dates: start: 20160118, end: 2016
  9. ELPLAT [Suspect]
     Active Substance: OXALIPLATIN
     Indication: COLON CANCER
     Dosage: DOSAGE IS UNCERTAIN.
     Route: 041
     Dates: start: 2016
  10. 5-FU [Suspect]
     Active Substance: FLUOROURACIL
     Indication: COLON CANCER
     Dosage: DOSAGE IS UNCERTAIN. ?UNCONSCIOUSNESS: ONE COURSE?INFECTION IN THE METASTATIC LUNG TUMOUR (SUSPECT
     Route: 041
     Dates: start: 20160118, end: 2016
  11. BEVACIZUMAB [Suspect]
     Active Substance: BEVACIZUMAB
     Indication: COLON CANCER
     Dosage: DOSAGE IS UNCERTAIN.
     Route: 041
     Dates: start: 2016

REACTIONS (3)
  - Loss of consciousness [Recovered/Resolved]
  - Confusional state [Recovering/Resolving]
  - Infected neoplasm [Recovering/Resolving]

NARRATIVE: CASE EVENT DATE: 20160124
